FAERS Safety Report 25829530 (Version 1)
Quarter: 2025Q3

REPORT INFORMATION
  Report Type: Report from Study
  Country: US (occurrence: US)
  Receive Date: 20250922
  Receipt Date: 20250922
  Transmission Date: 20251020
  Serious: No
  Sender: TRAVERE THERAPEUTICS
  Company Number: US-TRAVERE-2025TVT01337

PATIENT
  Age: 76 Year
  Sex: Male

DRUGS (6)
  1. FILSPARI [Suspect]
     Active Substance: SPARSENTAN
     Indication: IgA nephropathy
     Route: 048
     Dates: start: 20250514
  2. CARVEDILOL [Concomitant]
     Active Substance: CARVEDILOL
  3. FARXIGA [Concomitant]
     Active Substance: DAPAGLIFLOZIN PROPANEDIOL
  4. ATORVASTATIN [Concomitant]
     Active Substance: ATORVASTATIN
  5. DICYCLOMINE [Concomitant]
     Active Substance: DICYCLOMINE HYDROCHLORIDE
  6. OMEPRAZOLE [Concomitant]
     Active Substance: OMEPRAZOLE

REACTIONS (16)
  - Red blood cell count decreased [Unknown]
  - Haemoglobin decreased [Unknown]
  - Haematocrit decreased [Unknown]
  - Blood glucose increased [Unknown]
  - Blood creatinine increased [Unknown]
  - Glomerular filtration rate decreased [Unknown]
  - Blood urea nitrogen/creatinine ratio decreased [Unknown]
  - Blood uric acid decreased [Unknown]
  - White blood cells urine positive [Unknown]
  - Protein urine [Unknown]
  - White blood cells urine positive [Unknown]
  - Faecal occult blood positive [Unknown]
  - Red blood cells urine [Unknown]
  - Hypotension [Unknown]
  - Dizziness [Unknown]
  - Blood urea increased [Unknown]

NARRATIVE: CASE EVENT DATE: 20250603
